FAERS Safety Report 8848159 (Version 1)
Quarter: 2012Q4

REPORT INFORMATION
  Report Type: 
  Country: US (occurrence: US)
  Receive Date: 20121018
  Receipt Date: 20121018
  Transmission Date: 20130627
  Serious: Yes (Death)
  Sender: FDA-Public Use
  Company Number: US-ROCHE-1104303

PATIENT
  Sex: Female

DRUGS (6)
  1. AVASTIN [Suspect]
     Indication: BREAST CANCER
     Route: 042
     Dates: start: 20090702, end: 20090702
  2. AVASTIN [Suspect]
     Indication: BONE NEOPLASM MALIGNANT
  3. HERCEPTIN [Suspect]
     Indication: BREAST CANCER
     Route: 050
  4. HERCEPTIN [Suspect]
     Indication: BREAST CANCER
  5. XELODA [Suspect]
     Indication: BONE NEOPLASM MALIGNANT
     Route: 050
  6. XELODA [Suspect]
     Indication: BREAST CANCER

REACTIONS (6)
  - Disease progression [Fatal]
  - Fatigue [Unknown]
  - Epigastric discomfort [Unknown]
  - Diarrhoea [Unknown]
  - Rash [Unknown]
  - Duodenal ulcer [Unknown]
